FAERS Safety Report 12867675 (Version 1)
Quarter: 2016Q4

REPORT INFORMATION
  Report Type: Spontaneous
  Country: GB (occurrence: GB)
  Receive Date: 20161020
  Receipt Date: 20161020
  Transmission Date: 20170207
  Serious: Yes (Other)
  Sender: FDA-Public Use
  Company Number: GB-TEVA-703346ACC

PATIENT
  Age: 42 Year
  Sex: Male

DRUGS (1)
  1. DIAZEPAM. [Suspect]
     Active Substance: DIAZEPAM
     Indication: INSOMNIA
     Dosage: 2 TABLET AT NIGHT
     Route: 048

REACTIONS (5)
  - Rib fracture [Unknown]
  - Coma [Unknown]
  - Product counterfeit [Unknown]
  - Fall [Unknown]
  - Defiant behaviour [Unknown]
